FAERS Safety Report 7884221-1 (Version None)
Quarter: 2011Q4

REPORT INFORMATION
  Report Type: 
  Country: None (occurrence: None)
  Receive Date: 20111102
  Receipt Date: 20111028
  Transmission Date: 20120403
  Serious: No
  Sender: FDA-Public Use
  Company Number: US-PFIZER INC-2011240087

PATIENT
  Sex: Male

DRUGS (5)
  1. ASPIRIN [Concomitant]
     Dosage: 81 UNK, UNK
  2. GLUCOTROL [Concomitant]
     Dosage: 10 UNK, 2X/DAY
  3. LYRICA [Suspect]
     Indication: DIABETIC NEUROPATHY
     Dosage: 50 UNK, 3X/DAY
     Route: 048
     Dates: start: 20110914, end: 20111004
  4. LASIX [Concomitant]
     Dosage: 20 UNK, UNK
  5. GLUCOPHAGE [Concomitant]
     Dosage: 500 UNK, 2X/DAY

REACTIONS (2)
  - PAIN OF SKIN [None]
  - PRURITUS [None]
